FAERS Safety Report 23221408 (Version 6)
Quarter: 2024Q1

REPORT INFORMATION
  Report Type: Spontaneous
  Country: US (occurrence: US)
  Receive Date: 20231123
  Receipt Date: 20240110
  Transmission Date: 20240410
  Serious: No
  Sender: FDA-Public Use
  Company Number: US-UNITED THERAPEUTICS-UNT-2023-031932

PATIENT
  Age: 21 Year
  Sex: Female
  Weight: 68.027 kg

DRUGS (18)
  1. REMODULIN [Suspect]
     Active Substance: TREPROSTINIL
     Indication: Pulmonary arterial hypertension
     Dosage: 0.009 ?G/KG (SELF FILLED WITH 3 ML PER CASSETTE AT THE RATE OF 37 MCL PER HOUR), CONTINUING
     Route: 058
     Dates: start: 202311, end: 202311
  2. REMODULIN [Suspect]
     Active Substance: TREPROSTINIL
     Dosage: 0.01 ?G/KG, CONTINUING
     Route: 058
     Dates: start: 202311, end: 202311
  3. REMODULIN [Suspect]
     Active Substance: TREPROSTINIL
     Dosage: 0.011 ?G/KG (SELF FILL CASSETTE WITH 3 ML; AT A RATE OF 45 MCL/HOUR), CONTINUING
     Route: 058
     Dates: start: 20231114
  4. REMODULIN [Suspect]
     Active Substance: TREPROSTINIL
     Dosage: 0.015 ?G/KG, CONTINUING (SELF-FILL CASSETTE WITH 3 ML; RATE OF 61 MCL PER HOUR)
     Route: 058
     Dates: start: 2023
  5. REMODULIN [Suspect]
     Active Substance: TREPROSTINIL
     Dosage: UNK, CONTINUING
     Route: 058
     Dates: start: 20231103
  6. UPTRAVI [Concomitant]
     Active Substance: SELEXIPAG
     Indication: Pulmonary arterial hypertension
     Dosage: 600 MCG, BID (1 IN 0.5 D)
     Route: 048
     Dates: end: 2023
  7. OPSUMIT [Concomitant]
     Active Substance: MACITENTAN
     Indication: Product used for unknown indication
     Dosage: UNK
     Route: 065
  8. KETAMINE HYDROCHLORIDE [Concomitant]
     Active Substance: KETAMINE HYDROCHLORIDE
     Indication: Product used for unknown indication
     Dosage: UNK
     Route: 065
  9. LECITHIN [Concomitant]
     Active Substance: LECITHIN
     Indication: Product used for unknown indication
     Dosage: UNK
     Route: 065
  10. TADALAFIL [Concomitant]
     Active Substance: TADALAFIL
     Indication: Product used for unknown indication
     Dosage: UNK
     Route: 065
  11. ALBUTEROL SULFATE [Concomitant]
     Active Substance: ALBUTEROL SULFATE
     Indication: Product used for unknown indication
     Dosage: UNK
     Route: 065
  12. CLONIDINE [Concomitant]
     Active Substance: CLONIDINE
     Indication: Product used for unknown indication
     Dosage: UNK
     Route: 065
  13. KETOPROFEN [Concomitant]
     Active Substance: KETOPROFEN
     Indication: Product used for unknown indication
     Dosage: UNK
     Route: 065
  14. SPIRONOLACTONE [Concomitant]
     Active Substance: SPIRONOLACTONE
     Indication: Product used for unknown indication
     Dosage: UNK
     Route: 065
  15. LIDOCAINE HYDROCHLORIDE [Concomitant]
     Active Substance: LIDOCAINE HYDROCHLORIDE
     Indication: Product used for unknown indication
     Dosage: UNK
     Route: 065
  16. AMITRIPTYLINE HYDROCHLORIDE [Concomitant]
     Active Substance: AMITRIPTYLINE HYDROCHLORIDE
     Indication: Product used for unknown indication
     Dosage: UNK
     Route: 065
  17. GABAPENTIN [Concomitant]
     Active Substance: GABAPENTIN
     Indication: Product used for unknown indication
     Dosage: UNK
     Route: 065
  18. POLOXAMER [Concomitant]
     Active Substance: POLOXAMER
     Indication: Product used for unknown indication
     Dosage: UNK
     Route: 065

REACTIONS (17)
  - Musculoskeletal chest pain [Unknown]
  - Axillary pain [Unknown]
  - Infusion site pain [Unknown]
  - Dyspnoea [Unknown]
  - Fatigue [Unknown]
  - Headache [Unknown]
  - Diarrhoea [Unknown]
  - Pain in jaw [Unknown]
  - Myalgia [Unknown]
  - Infusion site pruritus [Unknown]
  - Urticaria [Unknown]
  - Infusion site haemorrhage [Recovered/Resolved]
  - Hyperhidrosis [Unknown]
  - Influenza [Unknown]
  - Infusion site discolouration [Unknown]
  - Infusion site induration [Unknown]
  - Gait disturbance [Unknown]

NARRATIVE: CASE EVENT DATE: 20231101
